FAERS Safety Report 7247431-2 (Version None)
Quarter: 2011Q1

REPORT INFORMATION
  Report Type: 
  Country: None (occurrence: None)
  Receive Date: 20110127
  Receipt Date: 20110124
  Transmission Date: 20110831
  Serious: Yes (Death)
  Sender: FDA-Public Use
  Company Number: PHHY2011US03332

PATIENT
  Sex: Female
  Weight: 64 kg

DRUGS (10)
  1. CALCIUM D [Concomitant]
  2. FUROSEMIDE [Concomitant]
  3. FAMOTIDINE [Concomitant]
  4. INTRON A [Concomitant]
     Dosage: 3MU/0.5
  5. CENTRUM SILVER [Concomitant]
  6. POTASSIUM [Concomitant]
  7. EXJADE [Suspect]
     Dosage: 500 MG, QD
     Route: 048
  8. STOOL SOFTENER [Concomitant]
  9. MULTIVITAMIN [Concomitant]
  10. EXJADE [Suspect]
     Dosage: 1000 MG DAILY
     Route: 048

REACTIONS (2)
  - MALAISE [None]
  - ACUTE MYELOID LEUKAEMIA [None]
